FAERS Safety Report 7632589-3 (Version None)
Quarter: 2011Q3

REPORT INFORMATION
  Report Type: 
  Country: None (occurrence: None)
  Receive Date: 20110725
  Receipt Date: 20101025
  Transmission Date: 20111222
  Serious: No
  Sender: FDA-Public Use
  Company Number: US-BRISTOL-MYERS SQUIBB COMPANY-15349335

PATIENT
  Age: 73 Year
  Sex: Male

DRUGS (9)
  1. ASPIRIN [Concomitant]
  2. WARFARIN SODIUM [Suspect]
     Dates: start: 20100101
  3. DIOVAN [Concomitant]
     Dosage: 80 MG IN THE MORNING AND 160MG QHS.
  4. FUROSEMIDE [Concomitant]
  5. COREG [Concomitant]
     Dosage: 12.5MG IN THE MORNING AND 25MG QHS.
  6. INSPRA [Concomitant]
  7. LIPITOR [Concomitant]
  8. NEURONTIN [Concomitant]
  9. MAGNESIUM [Concomitant]

REACTIONS (2)
  - FATIGUE [None]
  - FEELING ABNORMAL [None]
